FAERS Safety Report 12521797 (Version 1)
Quarter: 2016Q3

REPORT INFORMATION
  Report Type: Spontaneous
  Country: US (occurrence: US)
  Receive Date: 20160701
  Receipt Date: 20160701
  Transmission Date: 20161109
  Serious: No
  Sender: FDA-Public Use
  Company Number: US-MAYNE PHARMA-2015MYN000020

PATIENT
  Age: 64 Year
  Sex: Female
  Weight: 58.96 kg

DRUGS (3)
  1. DOXYCYCLINE HYCLATE DELAYED-REL TABLET [Suspect]
     Active Substance: DOXYCYCLINE HYCLATE
     Indication: EAR INFECTION
     Dosage: 100 MG, BID, FOR FIVE DAYS
     Dates: start: 20150615
  2. DOXYCYCLINE HYCLATE DELAYED-REL TABLET [Suspect]
     Active Substance: DOXYCYCLINE HYCLATE
     Indication: SINUSITIS
  3. DOXYCYCLINE HYCLATE DELAYED-REL TABLET [Suspect]
     Active Substance: DOXYCYCLINE HYCLATE
     Indication: ARTHROPOD BITE

REACTIONS (3)
  - Drug ineffective [Not Recovered/Not Resolved]
  - Product physical issue [Not Recovered/Not Resolved]
  - Product taste abnormal [Not Recovered/Not Resolved]

NARRATIVE: CASE EVENT DATE: 20150615
